FAERS Safety Report 24156122 (Version 5)
Quarter: 2024Q4

REPORT INFORMATION
  Report Type: Spontaneous
  Country: US (occurrence: US)
  Receive Date: 20240731
  Receipt Date: 20241226
  Transmission Date: 20250115
  Serious: Yes (Other)
  Sender: BRISTOL-MYERS SQUIBB COMPANY
  Company Number: US-BRISTOL-MYERS SQUIBB COMPANY-2024-120571

PATIENT
  Age: 64 Year
  Sex: Female

DRUGS (1)
  1. ORENCIA [Suspect]
     Active Substance: ABATACEPT
     Indication: Product used for unknown indication
     Route: 058

REACTIONS (8)
  - Back disorder [Unknown]
  - Upper respiratory tract infection [Unknown]
  - Immunodeficiency [Unknown]
  - Autoimmune disorder [Unknown]
  - Back pain [Unknown]
  - Cataract [Unknown]
  - Arthritis [Unknown]
  - Spinal stenosis [Unknown]
